FAERS Safety Report 20576458 (Version 4)
Quarter: 2022Q3

REPORT INFORMATION
  Report Type: Spontaneous
  Country: JP (occurrence: JP)
  Receive Date: 20220310
  Receipt Date: 20220715
  Transmission Date: 20221027
  Serious: No
  Sender: FDA-Public Use
  Company Number: JP-GLAXOSMITHKLINE-JP2022JPN038330

PATIENT

DRUGS (4)
  1. SOTROVIMAB [Suspect]
     Active Substance: SOTROVIMAB
     Indication: COVID-19
     Dosage: 500 MG, QD
     Route: 042
     Dates: start: 20220127, end: 20220127
  2. EQUMET COMBINATION TABLETS LD [Concomitant]
     Indication: Diabetes mellitus
     Dosage: 1 DF, BID
     Route: 048
     Dates: start: 20220101, end: 20220204
  3. PITAVASTATIN CALCIUM [Concomitant]
     Active Substance: PITAVASTATIN CALCIUM
     Indication: Hypercholesterolaemia
     Dosage: 2 MG, QD
     Route: 048
     Dates: start: 20220101, end: 20220204
  4. AZILSARTAN KAMEDOXOMIL [Concomitant]
     Active Substance: AZILSARTAN KAMEDOXOMIL
     Indication: Hypertension
     Dosage: 40 MG, QD
     Route: 048
     Dates: start: 20220101, end: 20220204

REACTIONS (1)
  - Hypertension [Recovered/Resolved]

NARRATIVE: CASE EVENT DATE: 20220127
